FAERS Safety Report 4507746-5 (Version None)
Quarter: 2004Q4

REPORT INFORMATION
  Report Type: 
  Country: None (occurrence: None)
  Receive Date: 20041123
  Receipt Date: 20041102
  Transmission Date: 20050328
  Serious: Yes (Other)
  Sender: FDA-Public Use
  Company Number: 200418458US

PATIENT
  Sex: Male
  Weight: 85 kg

DRUGS (10)
  1. LOVENOX [Suspect]
     Indication: ANTICOAGULANT THERAPY
     Dates: start: 20040904, end: 20040917
  2. LOVENOX [Suspect]
     Indication: CEREBROVASCULAR ACCIDENT PROPHYLAXIS
     Dates: start: 20040904, end: 20040917
  3. COUMADIN [Concomitant]
     Indication: CEREBROVASCULAR ACCIDENT
     Route: 048
     Dates: start: 19990701, end: 20040903
  4. CATAPRES [Concomitant]
     Route: 048
  5. ACYCLOVIR [Concomitant]
  6. LESCOL XL [Concomitant]
  7. MULTIVITAMIN [Concomitant]
     Dosage: DOSE: NOT PROVIDED
  8. FLOMAX BPH [Concomitant]
  9. ATENOLOL [Concomitant]
  10. NITROGLYCERIN [Concomitant]
     Indication: CHEST PAIN
     Route: 048

REACTIONS (13)
  - ATRIAL BIGEMINY [None]
  - BLOOD CHLORIDE DECREASED [None]
  - BLOOD GLUCOSE INCREASED [None]
  - BLOOD PRESSURE DIASTOLIC DECREASED [None]
  - BRADYCARDIA [None]
  - CARDIOMEGALY [None]
  - CEREBRAL ATROPHY [None]
  - HAEMATOCRIT DECREASED [None]
  - HYPONATRAEMIA [None]
  - INTERNATIONAL NORMALISED RATIO DECREASED [None]
  - PCO2 DECREASED [None]
  - PROTHROMBIN TIME PROLONGED [None]
  - TRANSIENT ISCHAEMIC ATTACK [None]
